FAERS Safety Report 4764432-4 (Version None)
Quarter: 2005Q3

REPORT INFORMATION
  Report Type: 
  Country: None (occurrence: None)
  Receive Date: 20050906
  Receipt Date: 20050822
  Transmission Date: 20060218
  Serious: Yes (Death, Hospitalization)
  Sender: FDA-Public Use
  Company Number: US_0508121118

PATIENT
  Sex: Female

DRUGS (1)
  1. ZYPREXA [Suspect]
     Dates: start: 20030101

REACTIONS (4)
  - COMPLETED SUICIDE [None]
  - DELUSION [None]
  - HALLUCINATION, AUDITORY [None]
  - PARANOIA [None]
